FAERS Safety Report 6748505-2 (Version None)
Quarter: 2010Q2

REPORT INFORMATION
  Report Type: 
  Country: None (occurrence: None)
  Receive Date: 20100527
  Receipt Date: 20100527
  Transmission Date: 20101027
  Serious: Yes (Other)
  Sender: FDA-Public Use
  Company Number: None

PATIENT
  Age: 77 Year
  Sex: Male
  Weight: 61.2356 kg

DRUGS (2)
  1. PLAVIX [Suspect]
     Indication: STENT PLACEMENT
     Dosage: 75 MG DAILY PO
     Route: 048
     Dates: start: 20100507, end: 20100525
  2. PLAVIX [Suspect]
     Indication: VASCULAR OCCLUSION
     Dosage: 75 MG DAILY PO
     Route: 048
     Dates: start: 20100507, end: 20100525

REACTIONS (1)
  - EYE HAEMORRHAGE [None]
